FAERS Safety Report 10996585 (Version 1)
Quarter: 2015Q2

REPORT INFORMATION
  Report Type: Spontaneous
  Country: US (occurrence: None)
  Receive Date: 20150407
  Receipt Date: 20150407
  Transmission Date: 20150821
  Serious: Yes (Hospitalization)
  Sender: FDA-Public Use
  Company Number: None

PATIENT
  Age: 59 Year
  Sex: Female
  Weight: 60.33 kg

DRUGS (12)
  1. FISH OIL [Concomitant]
     Active Substance: FISH OIL
  2. C [Concomitant]
  3. SYMBICORT [Concomitant]
     Active Substance: BUDESONIDE\FORMOTEROL FUMARATE DIHYDRATE
  4. VENTOLIN [Concomitant]
     Active Substance: ALBUTEROL SULFATE
  5. CALCIUM [Concomitant]
     Active Substance: CALCIUM
  6. OMPERAZOLE [Concomitant]
     Active Substance: OMEPRAZOLE
  7. MELATIN [Concomitant]
  8. SINGULAIR [Concomitant]
     Active Substance: MONTELUKAST SODIUM
  9. BIOTIN [Concomitant]
     Active Substance: BIOTIN
  10. FETZIMA [Concomitant]
     Active Substance: LEVOMILNACIPRAN HYDROCHLORIDE
  11. ALPRAZOLAM. [Suspect]
     Active Substance: ALPRAZOLAM
     Indication: INSOMNIA
     Dosage: 1 PILL @ BED ONCE EST. 10
     Dates: start: 20150130, end: 20150221
  12. FLONASE [Concomitant]
     Active Substance: FLUTICASONE PROPIONATE

REACTIONS (12)
  - Paraesthesia [None]
  - Headache [None]
  - Hyperhidrosis [None]
  - Nervousness [None]
  - Tremor [None]
  - Pyrexia [None]
  - Confusional state [None]
  - Malaise [None]
  - Insomnia [None]
  - Dysphemia [None]
  - Hypoaesthesia [None]
  - Chest pain [None]

NARRATIVE: CASE EVENT DATE: 20150218
